FAERS Safety Report 21326038 (Version 1)
Quarter: 2022Q3

REPORT INFORMATION
  Report Type: Report from Study
  Country: None (occurrence: CA)
  Receive Date: 20220913
  Receipt Date: 20220913
  Transmission Date: 20221026
  Serious: Yes (Death)
  Sender: FDA-Public Use
  Company Number: CA-AKCEA THERAPEUTICS, INC.-2022IS003983

PATIENT
  Age: 64 Year
  Sex: Male
  Weight: 55.136 kg

DRUGS (3)
  1. TEGSEDI [Suspect]
     Active Substance: INOTERSEN SODIUM
     Indication: Familial amyloidosis
     Route: 058
  2. DEVICE [Suspect]
     Active Substance: DEVICE
  3. TEGSEDI [Suspect]
     Active Substance: INOTERSEN SODIUM
     Route: 065

REACTIONS (21)
  - Autonomic nervous system imbalance [Fatal]
  - Cardiac amyloidosis [Fatal]
  - Cardiac autonomic neuropathy [Fatal]
  - Dizziness [Fatal]
  - Frequent bowel movements [Fatal]
  - Functional gastrointestinal disorder [Fatal]
  - Genitourinary symptom [Fatal]
  - Haemoglobin decreased [Fatal]
  - Lymphocyte count decreased [Fatal]
  - Lymphocyte count decreased [Fatal]
  - Mean cell haemoglobin decreased [Fatal]
  - Mean cell haemoglobin increased [Fatal]
  - Mean cell volume increased [Fatal]
  - Monocyte count decreased [Fatal]
  - Red blood cell count decreased [Fatal]
  - Red cell distribution width increased [Fatal]
  - Weight decreased [Fatal]
  - White blood cell count decreased [Fatal]
  - Hypotension [Fatal]
  - Orthostatic hypotension [Fatal]
  - Platelet count decreased [Fatal]
